FAERS Safety Report 6389666-7 (Version None)
Quarter: 2009Q4

REPORT INFORMATION
  Report Type: 
  Country: None (occurrence: None)
  Receive Date: 20091006
  Receipt Date: 20091001
  Transmission Date: 20100525
  Serious: Yes (Other)
  Sender: FDA-Public Use
  Company Number: CH-BRISTOL-MYERS SQUIBB COMPANY-14803324

PATIENT
  Age: 38 Year
  Sex: Female

DRUGS (3)
  1. APROVEL TABS 300 MG [Suspect]
     Indication: ESSENTIAL HYPERTENSION
     Dosage: APROVEL FORTE TABS
     Route: 048
  2. NORVASC [Suspect]
     Indication: ESSENTIAL HYPERTENSION
     Dosage: NORVASC 10MG TABS
     Route: 048
  3. ASPIRIN [Suspect]
     Dosage: APIRIN CARDIO 100 FILMTABLETTEN
     Route: 048

REACTIONS (2)
  - ABORTION INDUCED [None]
  - PREGNANCY [None]
